FAERS Safety Report 8314098-1 (Version None)
Quarter: 2012Q2

REPORT INFORMATION
  Report Type: 
  Country: None (occurrence: None)
  Receive Date: 20120426
  Receipt Date: 20120420
  Transmission Date: 20120825
  Serious: Yes (Death, Hospitalization)
  Sender: FDA-Public Use
  Company Number: CA-CELGENEUS-028-C5013-12021489

PATIENT
  Sex: Female
  Weight: 45 kg

DRUGS (14)
  1. COZAAR [Concomitant]
     Dosage: 100 MILLIGRAM
     Route: 048
  2. DEXAMETHASONE [Suspect]
     Dosage: 20 MILLIGRAM
     Route: 065
     Dates: start: 20120211, end: 20120212
  3. AMLODIPINE [Concomitant]
     Dosage: 5 MILLIGRAM
     Route: 048
  4. LENALIDOMIDE [Suspect]
     Indication: MULTIPLE MYELOMA
     Dosage: 10 MILLIGRAM
     Route: 048
     Dates: start: 20111124
  5. DEXAMETHASONE [Suspect]
     Indication: MULTIPLE MYELOMA
     Dosage: 20 MILLIGRAM
     Route: 041
     Dates: start: 20111124
  6. DEXAMETHASONE [Suspect]
     Route: 041
  7. ASPIRIN [Concomitant]
     Dosage: 81 MILLIGRAM
     Route: 048
     Dates: start: 20101127, end: 20110107
  8. METOPROLOL TARTRATE [Concomitant]
     Dosage: 50 MILLIGRAM
     Route: 048
  9. DECADRON [Concomitant]
     Dosage: 500 MILLIGRAM
     Route: 041
  10. LENALIDOMIDE [Suspect]
     Dosage: 10 MILLIGRAM
     Route: 048
     Dates: start: 20120209, end: 20120212
  11. ENOXAPARIN SODIUM [Concomitant]
     Dosage: 40,000 UNITS
     Route: 048
     Dates: start: 20101222, end: 20110215
  12. ENOXAPARIN SODIUM [Concomitant]
     Dosage: 45 MILLIGRAM
     Route: 058
     Dates: start: 20120212, end: 20120213
  13. ENOXAPARIN SODIUM [Concomitant]
     Dosage: 60,000 UNITS
     Route: 048
     Dates: start: 20110216, end: 20120210
  14. ENOXAPARIN SODIUM [Concomitant]
     Dosage: 45 MILLIGRAM
     Route: 058
     Dates: start: 20120211, end: 20120211

REACTIONS (2)
  - PNEUMONIA [None]
  - ACUTE RESPIRATORY FAILURE [None]
